FAERS Safety Report 4627370-3 (Version None)
Quarter: 2005Q1

REPORT INFORMATION
  Report Type: 
  Country: None (occurrence: None)
  Receive Date: 20050331
  Receipt Date: 20050326
  Transmission Date: 20050727
  Serious: Yes (Other)
  Sender: FDA-Public Use
  Company Number: 2005-03-1580

PATIENT
  Age: 51 Year
  Sex: Female
  Weight: 61 kg

DRUGS (1)
  1. CLARITIN [Suspect]
     Indication: RHINITIS ALLERGIC
     Dosage: 10 MG ORAL
     Route: 048
     Dates: start: 20050315, end: 20050315

REACTIONS (5)
  - CHEST DISCOMFORT [None]
  - FATIGUE [None]
  - FEELING ABNORMAL [None]
  - PALPITATIONS [None]
  - THIRST [None]
